FAERS Safety Report 10194114 (Version 1)
Quarter: 2014Q2

REPORT INFORMATION
  Report Type: Spontaneous
  Country: US (occurrence: US)
  Receive Date: 20140524
  Receipt Date: 20140524
  Transmission Date: 20141212
  Serious: No
  Sender: FDA-Public Use
  Company Number: US-SANOFI-AVENTIS-2013SA066393

PATIENT
  Age: 63 Year
  Sex: Female

DRUGS (2)
  1. LANTUS SOLOSTAR [Suspect]
     Indication: TYPE 2 DIABETES MELLITUS
     Dosage: TAKEN FROM-100 DAYS DOSE:30 UNIT(S)
     Route: 058
  2. SOLOSTAR [Suspect]
     Indication: TYPE 2 DIABETES MELLITUS
     Dosage: TAKEN FROM-100 DAYS

REACTIONS (8)
  - Hyperhidrosis [Unknown]
  - Injection site haemorrhage [Unknown]
  - Blood glucose increased [Unknown]
  - Injection site discolouration [Unknown]
  - Injection site bruising [Unknown]
  - Injection site pain [Unknown]
  - Incorrect product storage [Unknown]
  - Drug administered at inappropriate site [Unknown]
